FAERS Safety Report 25544249 (Version 1)
Quarter: 2025Q3

REPORT INFORMATION
  Report Type: Spontaneous
  Country: US (occurrence: None)
  Receive Date: 20250711
  Receipt Date: 20250711
  Transmission Date: 20251020
  Serious: No
  Sender: FDA-CTU
  Company Number: None

PATIENT
  Age: 14 Year
  Sex: Female
  Weight: 60.75 kg

DRUGS (2)
  1. LEXAPRO [Suspect]
     Active Substance: ESCITALOPRAM OXALATE
     Indication: Anxiety
     Dosage: FREQUENCY : DAILY;?
     Route: 048
     Dates: start: 20240917, end: 20250110
  2. HERBALS [Concomitant]
     Active Substance: HERBALS

REACTIONS (8)
  - Product prescribing error [None]
  - Drug ineffective [None]
  - Therapy change [None]
  - Therapy interrupted [None]
  - Vulvovaginal burning sensation [None]
  - Vulvovaginal pain [None]
  - Muscle twitching [None]
  - Disturbance in attention [None]

NARRATIVE: CASE EVENT DATE: 20250117
